FAERS Safety Report 14711515 (Version 1)
Quarter: 2018Q2

REPORT INFORMATION
  Report Type: Spontaneous
  Country: US (occurrence: US)
  Receive Date: 20180403
  Receipt Date: 20180403
  Transmission Date: 20180711
  Serious: No
  Sender: FDA-Public Use
  Company Number: US-BAUSCH-BL-2017-035777

PATIENT
  Sex: Female

DRUGS (3)
  1. TRETINOIN CREAM 0.05% [Suspect]
     Active Substance: TRETINOIN
     Dosage: ONE AND HALF YEAR AGO
     Route: 061
     Dates: start: 201605
  2. TRETINOIN CREAM 0.05% [Suspect]
     Active Substance: TRETINOIN
     Route: 061
  3. TRETINOIN CREAM 0.05% [Suspect]
     Active Substance: TRETINOIN
     Indication: PRODUCT USED FOR UNKNOWN INDICATION
     Dosage: OVER 30-YEARS
     Route: 061

REACTIONS (2)
  - Drug ineffective [Unknown]
  - Dry skin [Unknown]
